FAERS Safety Report 9054100 (Version 1)
Quarter: 2013Q1

REPORT INFORMATION
  Report Type: Spontaneous
  Country: FR (occurrence: FR)
  Receive Date: 20130208
  Receipt Date: 20130208
  Transmission Date: 20140127
  Serious: Yes (Hospitalization, Other)
  Sender: FDA-Public Use
  Company Number: FR-PFIZER INC-2013049555

PATIENT
  Age: 64 Year
  Sex: Male

DRUGS (9)
  1. CORDARONE [Suspect]
     Dosage: UNK
     Route: 048
     Dates: start: 2009, end: 20121213
  2. PREVISCAN [Concomitant]
     Dosage: UNK
  3. INEXIUM [Concomitant]
     Dosage: UNK
  4. CRESTOR [Concomitant]
     Dosage: UNK
     Dates: end: 201212
  5. TAHOR [Concomitant]
     Dosage: UNK
     Dates: start: 201212
  6. LASILIX [Concomitant]
     Dosage: UNK
  7. NEBIVOLOL [Concomitant]
     Dosage: UNK
  8. TEMERIT [Concomitant]
     Dosage: UNK
     Dates: end: 20121213
  9. LEVOTHYROX [Concomitant]
     Dosage: UNK

REACTIONS (3)
  - Interstitial lung disease [Recovering/Resolving]
  - Pulmonary fibrosis [Recovering/Resolving]
  - International normalised ratio increased [Unknown]
